FAERS Safety Report 7833313-1 (Version None)
Quarter: 2011Q4

REPORT INFORMATION
  Report Type: 
  Country: None (occurrence: None)
  Receive Date: 20111020
  Receipt Date: 20111012
  Transmission Date: 20120403
  Serious: Yes (Hospitalization, Other)
  Sender: FDA-Public Use
  Company Number: TPA2011A06542

PATIENT
  Age: 49 Year
  Sex: Female
  Weight: 108.4097 kg

DRUGS (7)
  1. ZOCOR [Concomitant]
  2. LISINOPRIL [Concomitant]
  3. AMLODIPINE [Concomitant]
  4. ASPIRIN [Concomitant]
  5. ACTOS [Suspect]
     Indication: TYPE 2 DIABETES MELLITUS
     Dosage: QD, PER ORAL
     Route: 048
     Dates: start: 20060101, end: 20071201
  6. PLAVIX [Concomitant]
  7. COUMADIN [Concomitant]

REACTIONS (6)
  - PALPITATIONS [None]
  - FEELING ABNORMAL [None]
  - SENSATION OF FOREIGN BODY [None]
  - ANGINA PECTORIS [None]
  - MYOCARDIAL INFARCTION [None]
  - THROAT TIGHTNESS [None]
